FAERS Safety Report 5918459-7 (Version None)
Quarter: 2008Q4

REPORT INFORMATION
  Report Type: 
  Country: None (occurrence: None)
  Receive Date: 20081015
  Receipt Date: 20081006
  Transmission Date: 20090506
  Serious: Yes (Hospitalization)
  Sender: FDA-Public Use
  Company Number: DE-SANOFI-SYNTHELABO-A04200801180

PATIENT
  Sex: Male

DRUGS (3)
  1. BEVACIZUMAB [Suspect]
     Indication: COLORECTAL CANCER METASTATIC
     Route: 041
     Dates: start: 20080820, end: 20080820
  2. CAPECITABINE [Suspect]
     Indication: COLORECTAL CANCER METASTATIC
     Dosage: 2730 MG
     Route: 048
     Dates: start: 20080101, end: 20080901
  3. OXALIPLATIN [Suspect]
     Indication: COLORECTAL CANCER METASTATIC
     Route: 041
     Dates: start: 20080820, end: 20080820

REACTIONS (5)
  - FACE OEDEMA [None]
  - HAEMORRHAGE SUBCUTANEOUS [None]
  - MYOSCLEROSIS [None]
  - PAIN IN EXTREMITY [None]
  - RHABDOMYOLYSIS [None]
